FAERS Safety Report 21855699 (Version 2)
Quarter: 2024Q2

REPORT INFORMATION
  Report Type: Spontaneous
  Country: US (occurrence: US)
  Receive Date: 20230112
  Receipt Date: 20240419
  Transmission Date: 20240716
  Serious: No
  Sender: FDA-Public Use
  Company Number: US-PFIZER INC-202300011244

PATIENT
  Age: 35 Year
  Sex: Male

DRUGS (3)
  1. ETANERCEPT [Suspect]
     Active Substance: ETANERCEPT
     Indication: Psoriatic arthropathy
     Dosage: 25 MILLIGRAM
     Route: 014
  2. ETANERCEPT [Suspect]
     Active Substance: ETANERCEPT
     Dosage: 25 MG
     Route: 014
  3. ETANERCEPT [Suspect]
     Active Substance: ETANERCEPT
     Dosage: 500 MG, TWO 500-MG DOSES OVER A PERIOD OF 24 HOURS
     Route: 065

REACTIONS (2)
  - Application site joint effusion [Unknown]
  - Off label use [Unknown]
